FAERS Safety Report 7503301-3 (Version None)
Quarter: 2011Q2

REPORT INFORMATION
  Report Type: 
  Country: None (occurrence: None)
  Receive Date: 20110524
  Receipt Date: 20110524
  Transmission Date: 20111010
  Serious: Yes (Death)
  Sender: FDA-Public Use
  Company Number: None

PATIENT
  Age: 82 Year
  Sex: Male

DRUGS (11)
  1. M.V.I. [Concomitant]
  2. CALCIUM W/ VIT.D. [Concomitant]
  3. CARVEDILOL [Concomitant]
  4. REVLIMID [Suspect]
     Dosage: 5MG EVERY OTHER DAY ORALLY
     Route: 048
  5. EPOETIN [Concomitant]
  6. FOLIC ACID [Concomitant]
  7. CYANOCOBALAMIN [Concomitant]
  8. ZOCOR [Concomitant]
  9. CIPXOFLOXACIN [Concomitant]
  10. REVLIMID [Suspect]
     Indication: MYELODYSPLASTIC SYNDROME
     Dosage: 10MG DAILY ORALLY
     Route: 048
     Dates: start: 20101101
  11. REVLIMID [Suspect]
     Indication: MYELODYSPLASTIC SYNDROME
     Dosage: 10MG DAILY ORALLY
     Route: 048
     Dates: start: 20100501

REACTIONS (1)
  - NO THERAPEUTIC RESPONSE [None]
